FAERS Safety Report 12884226 (Version 1)
Quarter: 2016Q4

REPORT INFORMATION
  Report Type: Spontaneous
  Country: US (occurrence: US)
  Receive Date: 20161024
  Receipt Date: 20161024
  Transmission Date: 20170207
  Serious: No
  Sender: FDA-Public Use
  Company Number: None

PATIENT
  Sex: Female
  Weight: 36.32 kg

DRUGS (1)
  1. LONSURF [Suspect]
     Active Substance: TIPIRACIL HYDROCHLORIDE\TRIFLURIDINE
     Indication: RECTAL CANCER
     Dosage: 2 TABS FOR 10 DAYS
     Route: 048
     Dates: start: 20160923

REACTIONS (5)
  - Asthenia [None]
  - Vomiting [None]
  - Pain [None]
  - Therapy cessation [None]
  - Nausea [None]
